FAERS Safety Report 7895729-7 (Version None)
Quarter: 2011Q4

REPORT INFORMATION
  Report Type: 
  Country: None (occurrence: None)
  Receive Date: 20111106
  Receipt Date: 20110830
  Transmission Date: 20120403
  Serious: No
  Sender: FDA-Public Use
  Company Number: US-AMGEN-USASP2011044484

PATIENT
  Age: 64 Year
  Sex: Male

DRUGS (4)
  1. ENBREL [Suspect]
     Indication: REITER'S SYNDROME
  2. ENBREL [Suspect]
     Indication: RHEUMATOID ARTHRITIS
  3. ENBREL [Suspect]
     Indication: PSORIASIS
     Dosage: 50 MG, 2 TIMES/WK
     Dates: start: 20110802
  4. ENBREL [Suspect]
     Indication: OSTEOARTHRITIS

REACTIONS (5)
  - DRY SKIN [None]
  - ONYCHOMADESIS [None]
  - SKIN CHAPPED [None]
  - NAIL DISORDER [None]
  - PSORIASIS [None]
